FAERS Safety Report 11944351 (Version 2)
Quarter: 2016Q1

REPORT INFORMATION
  Report Type: Spontaneous
  Country: US (occurrence: US)
  Receive Date: 20160125
  Receipt Date: 20160128
  Transmission Date: 20160526
  Serious: Yes (Hospitalization)
  Sender: FDA-Public Use
  Company Number: US-HORIZON-RAV-0007-2016

PATIENT
  Age: 3 Year
  Sex: Female

DRUGS (5)
  1. CYCLINX2 [Concomitant]
     Indication: PRODUCT USED FOR UNKNOWN INDICATION
  2. CITRULLINE [Concomitant]
     Active Substance: CITRULLINE
     Indication: PRODUCT USED FOR UNKNOWN INDICATION
  3. ARGININE [Concomitant]
     Active Substance: ARGININE
  4. PRO-PHREE [Concomitant]
     Indication: PRODUCT USED FOR UNKNOWN INDICATION
  5. RAVICTI [Suspect]
     Active Substance: GLYCEROL PHENYLBUTYRATE
     Indication: ARGININOSUCCINATE LYASE DEFICIENCY
     Dosage: 1.5 ML TID

REACTIONS (2)
  - Ammonia increased [Recovered/Resolved]
  - Gastroenteritis viral [Recovered/Resolved]

NARRATIVE: CASE EVENT DATE: 20160116
